FAERS Safety Report 14969304 (Version 1)
Quarter: 2018Q2

REPORT INFORMATION
  Report Type: Spontaneous
  Country: PH (occurrence: PH)
  Receive Date: 20180604
  Receipt Date: 20180604
  Transmission Date: 20180711
  Serious: Yes (Death)
  Sender: FDA-Public Use
  Company Number: PH-NOVOPROD-600370

PATIENT
  Age: 68 Year
  Sex: Male

DRUGS (5)
  1. TRESIBA [Suspect]
     Active Substance: INSULIN DEGLUDEC
     Indication: TYPE 2 DIABETES MELLITUS
     Dosage: 14 U (DOSE TAKEN AT A.M.)
     Route: 065
     Dates: start: 20180307, end: 20180507
  2. AMLODIPINE [Concomitant]
     Active Substance: AMLODIPINE BESYLATE
     Indication: PRODUCT USED FOR UNKNOWN INDICATION
     Dosage: UNK (5)
  3. TELMISARTAN. [Concomitant]
     Active Substance: TELMISARTAN
     Dosage: O.D (40)
  4. ASPIRIN                            /00002701/ [Concomitant]
     Active Substance: ASPIRIN
     Dosage: O.D (80)
  5. GLIPTEN [Concomitant]
     Dosage: O.D (20)

REACTIONS (4)
  - Myocardial infarction [Fatal]
  - Cardiac failure [Fatal]
  - Pneumonia [Fatal]
  - Diabetes mellitus inadequate control [Fatal]

NARRATIVE: CASE EVENT DATE: 20180507
